FAERS Safety Report 5051706-5 (Version None)
Quarter: 2006Q3

REPORT INFORMATION
  Report Type: 
  Country: None (occurrence: None)
  Receive Date: 20060714
  Receipt Date: 20060609
  Transmission Date: 20061208
  Serious: Yes (Other)
  Sender: FDA-Public Use
  Company Number: PHBS2006IE08696

PATIENT
  Age: 48 Year
  Sex: Female

DRUGS (5)
  1. LOSEC [Concomitant]
     Dosage: 20 MG, QD
     Route: 065
  2. CALCICHEW-D3 MITE [Concomitant]
     Dosage: 1 DF, BID
     Route: 048
  3. SOLPADOL [Concomitant]
     Dosage: UNK, PRN
     Route: 048
  4. ZIMOVANE [Concomitant]
     Route: 065
  5. FEMARA [Suspect]
     Indication: BREAST CANCER FEMALE
     Dosage: 2.5 MG/D
     Dates: start: 20050505

REACTIONS (4)
  - DYSMENORRHOEA [None]
  - HAEMORRHAGE [None]
  - MENSTRUAL DISORDER [None]
  - VAGINAL HAEMORRHAGE [None]
